FAERS Safety Report 18352666 (Version 1)
Quarter: 2020Q4

REPORT INFORMATION
  Report Type: Spontaneous
  Country: US (occurrence: US)
  Receive Date: 20201006
  Receipt Date: 20201006
  Transmission Date: 20210114
  Serious: No
  Sender: FDA-Public Use
  Company Number: US-ALLERGAN-2013628US

PATIENT
  Sex: Female

DRUGS (6)
  1. POTASSIUM [Concomitant]
     Active Substance: POTASSIUM
  2. OMEGA 3 FISH OILS [Concomitant]
     Active Substance: OMEGA-3 FATTY ACIDS
  3. LINZESS [Suspect]
     Active Substance: LINACLOTIDE
     Indication: CONSTIPATION
  4. VITAMINS NOS [Concomitant]
     Active Substance: VITAMINS
  5. LINZESS [Suspect]
     Active Substance: LINACLOTIDE
     Indication: DIARRHOEA
     Dosage: UNK
     Route: 048
  6. FLAXSEED [Concomitant]
     Active Substance: FLAX SEED

REACTIONS (4)
  - Off label use [Unknown]
  - Illness [Not Recovered/Not Resolved]
  - Abdominal pain upper [Not Recovered/Not Resolved]
  - Inappropriate schedule of product administration [Unknown]
